FAERS Safety Report 15472517 (Version 1)
Quarter: 2018Q4

REPORT INFORMATION
  Report Type: Spontaneous
  Country: ES (occurrence: ES)
  Receive Date: 20181008
  Receipt Date: 20181008
  Transmission Date: 20190205
  Serious: Yes (Hospitalization, Other)
  Sender: FDA-Public Use
  Company Number: ES-GILEAD-2018-0351852

PATIENT
  Age: 73 Year
  Sex: Male

DRUGS (1)
  1. ZYDELIG [Suspect]
     Active Substance: IDELALISIB
     Indication: CHRONIC LYMPHOCYTIC LEUKAEMIA
     Dosage: 150 MG, BID
     Route: 065
     Dates: start: 201805

REACTIONS (3)
  - Pneumonitis [Recovered/Resolved]
  - Cytomegalovirus test positive [Recovered/Resolved]
  - Bronchopulmonary aspergillosis [Recovered/Resolved]
